FAERS Safety Report 9254236 (Version 1)
Quarter: 2013Q2

REPORT INFORMATION
  Report Type: Spontaneous
  Country: IT (occurrence: None)
  Receive Date: 20130419
  Receipt Date: 20130419
  Transmission Date: 20140414
  Serious: Yes (Other)
  Sender: FDA-Public Use
  Company Number: 1676510

PATIENT
  Age: 68 Year
  Sex: Male
  Weight: 90 kg

DRUGS (2)
  1. CARBOPLATIN [Suspect]
     Indication: NON-SMALL CELL LUNG CANCER
     Dosage: CYCLICAL
     Route: 042
     Dates: start: 20130405, end: 20130405
  2. (GEMCITABINE HYDROCHLORIDE) [Concomitant]

REACTIONS (2)
  - Feeling hot [None]
  - Pruritus [None]
